FAERS Safety Report 6290608-3 (Version None)
Quarter: 2009Q3

REPORT INFORMATION
  Report Type: 
  Country: None (occurrence: None)
  Receive Date: 20090730
  Receipt Date: 20090723
  Transmission Date: 20100115
  Serious: Yes (Death, Hospitalization)
  Sender: FDA-Public Use
  Company Number: US-JNJFOC-20060906144

PATIENT
  Sex: Male
  Weight: 78.02 kg

DRUGS (8)
  1. RISPERDAL [Suspect]
     Indication: PSYCHOTIC DISORDER
     Route: 048
  2. RISPERDAL CONSTA [Suspect]
     Indication: PSYCHOTIC DISORDER
     Route: 030
  3. DEPAKOTE [Concomitant]
  4. COGENTIN [Concomitant]
  5. COLACE [Concomitant]
  6. MOTRIN [Concomitant]
  7. ROBITUSSIN [Concomitant]
  8. DECONGESTANT OTC* [Concomitant]

REACTIONS (6)
  - ANAEMIA [None]
  - EXTRAPYRAMIDAL DISORDER [None]
  - NEUROLEPTIC MALIGNANT SYNDROME [None]
  - PNEUMONIA [None]
  - TREMOR [None]
  - TYPE 2 DIABETES MELLITUS [None]
